FAERS Safety Report 7297534-1 (Version None)
Quarter: 2011Q1

REPORT INFORMATION
  Report Type: 
  Country: None (occurrence: None)
  Receive Date: 20110216
  Receipt Date: 20110208
  Transmission Date: 20110831
  Serious: Yes (Other)
  Sender: FDA-Public Use
  Company Number: US-GENENTECH-310641

PATIENT
  Sex: Female
  Weight: 56.236 kg

DRUGS (5)
  1. NEXIUM [Concomitant]
     Indication: PRODUCT USED FOR UNKNOWN INDICATION
     Dosage: 40 MG, QD
  2. MEDICATION (UNK INGREDIENT) [Concomitant]
     Indication: PRODUCT USED FOR UNKNOWN INDICATION
  3. PROVENTIL [Concomitant]
     Indication: PRODUCT USED FOR UNKNOWN INDICATION
     Dosage: UNK
  4. ADVAIR [Concomitant]
     Indication: PRODUCT USED FOR UNKNOWN INDICATION
     Dosage: UNK
  5. XOLAIR [Suspect]
     Indication: ASTHMA
     Dosage: 375 MG, Q2W
     Route: 058
     Dates: start: 20080909, end: 20101116

REACTIONS (3)
  - CHEST DISCOMFORT [None]
  - EYE SWELLING [None]
  - THROAT TIGHTNESS [None]
